FAERS Safety Report 8602468-3 (Version None)
Quarter: 2012Q3

REPORT INFORMATION
  Report Type: 
  Country: None (occurrence: None)
  Receive Date: 20120817
  Receipt Date: 20120807
  Transmission Date: 20120928
  Serious: Yes (Other)
  Sender: FDA-Public Use
  Company Number: PT-ROCHE-1080964

PATIENT
  Age: 61 Year
  Sex: Male

DRUGS (3)
  1. OXALIPLATIN [Concomitant]
     Indication: GASTROOESOPHAGEAL CANCER
  2. XELODA [Suspect]
     Indication: GASTROOESOPHAGEAL CANCER
  3. EPIRUBICIN [Concomitant]
     Indication: GASTROOESOPHAGEAL CANCER

REACTIONS (1)
  - DISEASE PROGRESSION [None]
